FAERS Safety Report 20980735 (Version 1)
Quarter: 2022Q2

REPORT INFORMATION
  Report Type: Spontaneous
  Country: US (occurrence: US)
  Receive Date: 20220620
  Receipt Date: 20220620
  Transmission Date: 20220720
  Serious: Yes (Other)
  Sender: FDA-Public Use
  Company Number: US-BRISTOL-MYERS SQUIBB COMPANY-2022-057920

PATIENT
  Age: 53 Year

DRUGS (1)
  1. ORENCIA [Suspect]
     Active Substance: ABATACEPT
     Indication: Product used for unknown indication
     Dosage: DOSAGE: 25 MILLIGRAM PER MILLILITRE
     Route: 058
     Dates: start: 20190103

REACTIONS (2)
  - Pancreatic carcinoma [Not Recovered/Not Resolved]
  - Prescribed underdose [Unknown]
